FAERS Safety Report 7934492-8 (Version None)
Quarter: 2011Q4

REPORT INFORMATION
  Report Type: 
  Country: None (occurrence: None)
  Receive Date: 20111118
  Receipt Date: 20111107
  Transmission Date: 20120403
  Serious: Yes (Death, Hospitalization)
  Sender: FDA-Public Use
  Company Number: MPS1-1000593

PATIENT
  Age: 6 Year
  Sex: Female

DRUGS (1)
  1. ALDURAZYME [Suspect]
     Indication: MUCOPOLYSACCHARIDOSIS I
     Dosage: 3 VIALS, INTRAVENOUS
     Route: 042
     Dates: start: 20080731

REACTIONS (6)
  - RESPIRATORY ARREST [None]
  - CARDIAC ARREST [None]
  - PNEUMONIA [None]
  - SECRETION DISCHARGE [None]
  - ENDOTRACHEAL INTUBATION COMPLICATION [None]
  - FALL [None]
